FAERS Safety Report 4791257-6 (Version None)
Quarter: 2005Q4

REPORT INFORMATION
  Report Type: 
  Country: None (occurrence: None)
  Receive Date: 20051005
  Receipt Date: 20050927
  Transmission Date: 20060501
  Serious: Yes (Hospitalization)
  Sender: FDA-Public Use
  Company Number: GXKR2005CZ01710

PATIENT
  Age: 34 Year
  Sex: Female

DRUGS (1)
  1. KETONAL (NGX) (KETOPROFEN) CREAM [Suspect]
     Indication: JOINT SPRAIN
     Dosage: BID, LOCAL
     Dates: start: 20050819, end: 20050901

REACTIONS (3)
  - BLISTER [None]
  - ERYTHEMA [None]
  - OEDEMA [None]
